FAERS Safety Report 12951665 (Version 3)
Quarter: 2016Q4

REPORT INFORMATION
  Report Type: Spontaneous
  Country: US (occurrence: US)
  Receive Date: 20161117
  Receipt Date: 20161219
  Transmission Date: 20170207
  Serious: Yes (Life-Threatening, Other)
  Sender: FDA-Public Use
  Company Number: US-BAYER-2016-219033

PATIENT
  Age: 80 Year
  Sex: Male

DRUGS (1)
  1. GADAVIST [Suspect]
     Active Substance: GADOBUTROL
     Indication: SCAN WITH CONTRAST
     Dosage: 7.5 ML, ONCE
     Route: 042
     Dates: start: 20161107, end: 20161107

REACTIONS (6)
  - Feeling cold [None]
  - Flushing [None]
  - Dizziness [None]
  - Hypotension [None]
  - Unresponsive to stimuli [None]
  - Urticaria [None]
